FAERS Safety Report 9392993 (Version 2)
Quarter: 2013Q3

REPORT INFORMATION
  Report Type: Spontaneous
  Country: IT (occurrence: IT)
  Receive Date: 20130710
  Receipt Date: 20130813
  Transmission Date: 20140515
  Serious: Yes (Hospitalization)
  Sender: FDA-Public Use
  Company Number: IT-NOVOPROD-382105

PATIENT
  Age: 90 Year
  Sex: Female

DRUGS (3)
  1. NOVONORM [Suspect]
     Indication: DIABETES MELLITUS
     Dosage: 2 MG, QD
     Route: 048
     Dates: start: 20120113
  2. NORVASC [Concomitant]
     Dosage: 5 MG, QD
  3. PANTORC [Concomitant]
     Dosage: 20 MG, QD

REACTIONS (2)
  - Cyclic vomiting syndrome [Recovered/Resolved]
  - Diabetes mellitus inadequate control [Recovered/Resolved]
